FAERS Safety Report 5478855-1 (Version None)
Quarter: 2007Q4

REPORT INFORMATION
  Report Type: 
  Country: None (occurrence: None)
  Receive Date: 20071002
  Receipt Date: 20070801
  Transmission Date: 20080405
  Serious: Yes (Other)
  Sender: FDA-Public Use
  Company Number: S07-UKI-02033-01

PATIENT
  Age: 23 Year
  Sex: Male

DRUGS (8)
  1. CITALOPRAM HYDROBROMIDE [Suspect]
     Indication: DEPRESSION
     Dosage: 50 MG QD PO
     Route: 048
     Dates: start: 20061215, end: 20070420
  2. CITALOPRAM HYDROBROMIDE [Suspect]
     Indication: LEARNING DISABILITY
     Dosage: 50 MG QD PO
     Route: 048
     Dates: start: 20061215, end: 20070420
  3. CITALOPRAM HYDROBROMIDE [Suspect]
     Indication: DEPRESSION
     Dosage: 40 MG QD PO
     Route: 048
     Dates: start: 20070420
  4. CITALOPRAM HYDROBROMIDE [Suspect]
     Indication: LEARNING DISABILITY
     Dosage: 40 MG QD PO
     Route: 048
     Dates: start: 20070420
  5. CITALOPRAM HYDROBROMIDE [Suspect]
     Indication: DEPRESSION
     Dosage: 40 MG QD PO
     Route: 048
     Dates: end: 20061215
  6. CITALOPRAM HYDROBROMIDE [Suspect]
     Indication: LEARNING DISABILITY
     Dosage: 40 MG QD PO
     Route: 048
     Dates: end: 20061215
  7. EPILIM (VALPROATE SODIUM) [Concomitant]
  8. KEPPRA [Concomitant]

REACTIONS (3)
  - CONDITION AGGRAVATED [None]
  - CONVULSION [None]
  - DYSKINESIA [None]
